FAERS Safety Report 11596595 (Version 3)
Quarter: 2016Q1

REPORT INFORMATION
  Report Type: Spontaneous
  Country: US (occurrence: US)
  Receive Date: 20151006
  Receipt Date: 20160202
  Transmission Date: 20160525
  Serious: No
  Sender: FDA-Public Use
  Company Number: US-009507513-1510USA000839

PATIENT
  Age: 19 Year
  Sex: Female
  Weight: 62.59 kg

DRUGS (1)
  1. NEXPLANON [Suspect]
     Active Substance: ETONOGESTREL
     Indication: CONTRACEPTION
     Dosage: ^68 MG ETONOGESTREL^/^ONE IMPLANT^
     Route: 059
     Dates: start: 20150820, end: 20151001

REACTIONS (6)
  - Implant site vesicles [Recovering/Resolving]
  - Device expulsion [Recovered/Resolved]
  - Device deployment issue [Recovered/Resolved]
  - Implant site pain [Recovering/Resolving]
  - Device difficult to use [Recovered/Resolved]
  - Implant site irritation [Recovering/Resolving]

NARRATIVE: CASE EVENT DATE: 20150820
